FAERS Safety Report 10188845 (Version 1)
Quarter: 2014Q2

REPORT INFORMATION
  Report Type: Spontaneous
  Country: US (occurrence: US)
  Receive Date: 20140522
  Receipt Date: 20140522
  Transmission Date: 20141212
  Serious: No
  Sender: FDA-Public Use
  Company Number: US-SA-2014SA025716

PATIENT
  Age: 65 Year
  Sex: Female

DRUGS (6)
  1. SOLOSTAR [Suspect]
     Indication: DEVICE THERAPY
  2. SOLOSTAR [Suspect]
     Indication: DEVICE THERAPY
  3. LANTUS SOLOSTAR [Suspect]
     Indication: TYPE 2 DIABETES MELLITUS
     Dosage: DOSE:25 UNIT(S)
     Route: 051
  4. LANTUS SOLOSTAR [Suspect]
     Indication: TYPE 2 DIABETES MELLITUS
     Dosage: DOSE:15 UNIT(S)
     Route: 051
  5. DRUG USED IN DIABETES [Suspect]
     Route: 065
  6. ALL OTHER THERAPEUTIC PRODUCTS [Concomitant]

REACTIONS (3)
  - Injection site haemorrhage [Unknown]
  - Blood glucose increased [Recovered/Resolved]
  - Incorrect dose administered [Unknown]
